FAERS Safety Report 8090222 (Version 2)
Quarter: 2014Q2

REPORT INFORMATION
  Report Type: Spontaneous
  Country: US (occurrence: US)
  Receive Date: 20110815
  Receipt Date: 20140422
  Transmission Date: 20141212
  Serious: Yes (Hospitalization)
  Sender: FDA-Public Use
  Company Number: US-GLAXOSMITHKLINE-A0886527A

PATIENT
  Sex: Male
  Weight: 104.1 kg

DRUGS (16)
  1. AVANDIA [Suspect]
     Indication: DIABETES MELLITUS
     Dosage: 8MG PER DAY
     Route: 048
     Dates: start: 2002, end: 2007
  2. GLUCOPHAGE [Concomitant]
  3. HCTZ [Concomitant]
  4. COUMADIN [Concomitant]
  5. SOTALOL [Concomitant]
  6. TOPROL [Concomitant]
  7. LIPITOR [Concomitant]
  8. MICROZIDE [Concomitant]
  9. NITROGLYCERIN [Concomitant]
  10. PHENERGAN [Concomitant]
  11. TRAMADOL [Concomitant]
  12. FLOMAX [Concomitant]
  13. ZANTAC [Concomitant]
  14. UNIVASC [Concomitant]
  15. ASPIRIN [Concomitant]
  16. NEXIUM [Concomitant]

REACTIONS (8)
  - Atrial fibrillation [Unknown]
  - Transient ischaemic attack [Unknown]
  - Cardiac failure congestive [Unknown]
  - Carotid artery disease [Unknown]
  - Myocardial infarction [Unknown]
  - Ischaemic cardiomyopathy [Unknown]
  - Coronary artery disease [Unknown]
  - Coronary artery bypass [Unknown]
